FAERS Safety Report 13230976 (Version 2)
Quarter: 2017Q1

REPORT INFORMATION
  Report Type: Report from Study
  Country: NL (occurrence: NL)
  Receive Date: 20170214
  Receipt Date: 20170321
  Transmission Date: 20170428
  Serious: Yes (Hospitalization, Other)
  Sender: FDA-Public Use
  Company Number: NL-AMGEN-NLDSL2017020843

PATIENT
  Age: 83 Year
  Sex: Male

DRUGS (1)
  1. ARANESP [Suspect]
     Active Substance: DARBEPOETIN ALFA
     Indication: MYELODYSPLASTIC SYNDROME
     Dosage: 500 MCG (500 MCG/ML 1.0 ML), Q2WK
     Route: 058

REACTIONS (3)
  - Pneumonia [Unknown]
  - Sense of oppression [Unknown]
  - Off label use [Unknown]

NARRATIVE: CASE EVENT DATE: 20170206
